FAERS Safety Report 22161381 (Version 9)
Quarter: 2023Q2

REPORT INFORMATION
  Report Type: Report from Study
  Country: CN (occurrence: CN)
  Receive Date: 20230331
  Receipt Date: 20230620
  Transmission Date: 20230722
  Serious: Yes (Hospitalization)
  Sender: FDA-Public Use
  Company Number: CN-PFM-2023-01776

PATIENT
  Age: 65 Year
  Sex: Male
  Weight: 52 kg

DRUGS (2)
  1. ENCORAFENIB [Suspect]
     Active Substance: ENCORAFENIB
     Indication: Lung adenocarcinoma
     Dosage: 450 MG, 1X/DAY
     Route: 048
     Dates: start: 20230310, end: 20230321
  2. BINIMETINIB [Suspect]
     Active Substance: BINIMETINIB
     Indication: Lung adenocarcinoma
     Dosage: 45 MG, 2X/DAY
     Route: 048
     Dates: start: 20230310, end: 20230321

REACTIONS (1)
  - Dyspnoea [Recovered/Resolved]

NARRATIVE: CASE EVENT DATE: 20230321
